FAERS Safety Report 21304377 (Version 1)
Quarter: 2022Q3

REPORT INFORMATION
  Report Type: Spontaneous
  Country: US (occurrence: None)
  Receive Date: 20220907
  Receipt Date: 20220907
  Transmission Date: 20221026
  Serious: No
  Sender: FDA-Public Use
  Company Number: US-ARIS GLOBAL-202108-1329

PATIENT
  Sex: Female

DRUGS (7)
  1. OXERVATE [Suspect]
     Active Substance: CENEGERMIN-BKBJ
     Indication: Neurotrophic keratopathy
     Route: 047
     Dates: start: 20210713
  2. REPHRESH [Concomitant]
  3. BACITRACIN ZINC\POLYMYXIN B SULFATE [Concomitant]
     Active Substance: BACITRACIN ZINC\POLYMYXIN B SULFATE
  4. MOXIFLOXACIN [Concomitant]
     Active Substance: MOXIFLOXACIN
  5. PREDNISOLONE/NEPAFENAC [Concomitant]
  6. BYSTOLIC [Concomitant]
     Active Substance: NEBIVOLOL HYDROCHLORIDE
  7. LEVOTHYROXINE [Concomitant]
     Active Substance: LEVOTHYROXINE

REACTIONS (1)
  - Therapy interrupted [Unknown]
